FAERS Safety Report 5767393-4 (Version None)
Quarter: 2008Q2

REPORT INFORMATION
  Report Type: 
  Country: None (occurrence: None)
  Receive Date: 20080612
  Receipt Date: 20080606
  Transmission Date: 20081010
  Serious: Yes (Hospitalization)
  Sender: FDA-Public Use
  Company Number: B0524595A

PATIENT
  Age: 47 Year
  Sex: Female

DRUGS (3)
  1. LAMICTAL [Suspect]
     Route: 065
  2. LITHIUM SULPHATE [Concomitant]
  3. RANITIDINE HCL [Concomitant]

REACTIONS (5)
  - FALL [None]
  - HYPOKALAEMIA [None]
  - MEMORY IMPAIRMENT [None]
  - RADIUS FRACTURE [None]
  - SYNCOPE [None]
